FAERS Safety Report 24728336 (Version 3)
Quarter: 2025Q1

REPORT INFORMATION
  Report Type: Spontaneous
  Country: US (occurrence: US)
  Receive Date: 20241212
  Receipt Date: 20250226
  Transmission Date: 20250408
  Serious: No
  Sender: JOHNSON AND JOHNSON
  Company Number: US-JNJFOC-20241131612

PATIENT
  Age: 59 Year
  Sex: Male

DRUGS (4)
  1. YONDELIS [Suspect]
     Active Substance: TRABECTEDIN
     Indication: Product used for unknown indication
     Dates: start: 20240913
  2. YONDELIS [Suspect]
     Active Substance: TRABECTEDIN
     Dates: start: 20240914
  3. YONDELIS [Suspect]
     Active Substance: TRABECTEDIN
     Route: 065
     Dates: start: 20240912
  4. YONDELIS [Suspect]
     Active Substance: TRABECTEDIN
     Route: 065
     Dates: start: 20241115, end: 20241116

REACTIONS (3)
  - Inadvertent injection air bubble [Recovered/Resolved]
  - Incorrect dose administered by device [Unknown]
  - Drug delivery system malfunction [Unknown]

NARRATIVE: CASE EVENT DATE: 20240914
